FAERS Safety Report 23179341 (Version 4)
Quarter: 2024Q1

REPORT INFORMATION
  Report Type: Spontaneous
  Country: JP (occurrence: JP)
  Receive Date: 20231113
  Receipt Date: 20240205
  Transmission Date: 20240409
  Serious: Yes (Hospitalization, Disabling)
  Sender: FDA-Public Use
  Company Number: JP-NOVOPROD-1137685

PATIENT
  Age: 26 Year
  Sex: Female
  Weight: 49.8 kg

DRUGS (2)
  1. TRESIBA [Suspect]
     Active Substance: INSULIN DEGLUDEC
     Indication: Fulminant type 1 diabetes mellitus
     Dosage: 10 IU, QD
     Route: 058
     Dates: start: 20210108
  2. LYUMJEV [Concomitant]
     Active Substance: INSULIN LISPRO-AABC
     Indication: Fulminant type 1 diabetes mellitus
     Dosage: 13 IU, QD
     Route: 058
     Dates: start: 20210108

REACTIONS (4)
  - Hypoglycaemic encephalopathy [Recovering/Resolving]
  - Intentional overdose [Unknown]
  - Memory impairment [Unknown]
  - Blood glucose increased [Unknown]

NARRATIVE: CASE EVENT DATE: 20231024
